FAERS Safety Report 5645244-6 (Version None)
Quarter: 2008Q1

REPORT INFORMATION
  Report Type: 
  Country: None (occurrence: None)
  Receive Date: 20080229
  Receipt Date: 20080219
  Transmission Date: 20080703
  Serious: Yes (Death)
  Sender: FDA-Public Use
  Company Number: MX-TEVA-167884ISR

PATIENT
  Age: 50 Year
  Sex: Female

DRUGS (1)
  1. AMPHOTERICIN B [Suspect]
     Route: 042

REACTIONS (2)
  - ATELECTASIS [None]
  - DEATH [None]
